FAERS Safety Report 16527007 (Version 1)
Quarter: 2019Q3

REPORT INFORMATION
  Report Type: Spontaneous
  Country: PL (occurrence: PL)
  Receive Date: 20190703
  Receipt Date: 20190703
  Transmission Date: 20191004
  Serious: Yes (Death)
  Sender: FDA-Public Use
  Company Number: PL-PFIZER INC-2019280027

PATIENT
  Age: 58 Year
  Sex: Male
  Weight: 67 kg

DRUGS (6)
  1. CAMPTO [Suspect]
     Active Substance: IRINOTECAN
     Indication: RECTAL CANCER
     Dosage: 302 MG, UNK
     Route: 042
     Dates: start: 20190417, end: 20190417
  2. ZALTRAP [Suspect]
     Active Substance: ZIV-AFLIBERCEPT
     Indication: RECTAL CANCER
     Dosage: DOSE: 268
     Route: 042
     Dates: start: 20190417, end: 20190417
  3. ZALTRAP [Suspect]
     Active Substance: ZIV-AFLIBERCEPT
     Dosage: DOSE: 268
     Route: 042
     Dates: start: 20190417, end: 20190417
  4. FLUOROURACIL MEDAC [Suspect]
     Active Substance: FLUOROURACIL
     Dosage: DOSE: 672
     Route: 042
     Dates: start: 20190417, end: 20190418
  5. LEVOFOLIC [Concomitant]
     Active Substance: LEUCOVORIN
     Dosage: UNK
  6. FLUOROURACIL MEDAC [Suspect]
     Active Substance: FLUOROURACIL
     Indication: RECTAL CANCER
     Dosage: DOSE: 2016
     Route: 041
     Dates: start: 20190417, end: 20190419

REACTIONS (9)
  - Diarrhoea [Fatal]
  - Ileus [Fatal]
  - Respiratory arrest [Fatal]
  - Acute kidney injury [Fatal]
  - Agranulocytosis [Fatal]
  - Infection [Fatal]
  - Cardiopulmonary failure [Fatal]
  - Bacterial infection [Fatal]
  - Neutropenia [Fatal]

NARRATIVE: CASE EVENT DATE: 20190421
